FAERS Safety Report 8086086-4 (Version None)
Quarter: 2012Q1

REPORT INFORMATION
  Report Type: 
  Country: None (occurrence: None)
  Receive Date: 20120128
  Receipt Date: 20110603
  Transmission Date: 20120608
  Serious: No
  Sender: FDA-Public Use
  Company Number: US-ABBOTT-11P-163-0730193-00

PATIENT
  Age: 50 Year
  Sex: Female

DRUGS (4)
  1. HYDROXYCHLOR [Concomitant]
     Indication: RHEUMATOID ARTHRITIS
     Dosage: DAILY
  2. LISINOPRIL [Concomitant]
     Indication: HYPERTENSION
  3. HUMIRA [Suspect]
     Indication: RHEUMATOID ARTHRITIS
     Dates: start: 20110407
  4. FOLIC ACID [Concomitant]
     Indication: PRODUCT USED FOR UNKNOWN INDICATION
     Dosage: DAILY

REACTIONS (1)
  - COUGH [None]
